FAERS Safety Report 5856945-9 (Version None)
Quarter: 2008Q3

REPORT INFORMATION
  Report Type: 
  Country: None (occurrence: None)
  Receive Date: 20080822
  Receipt Date: 20080822
  Transmission Date: 20090109
  Serious: Yes (Life-Threatening, Other)
  Sender: FDA-Public Use
  Company Number: None

PATIENT
  Sex: Female
  Weight: 108.8633 kg

DRUGS (1)
  1. COLCHICINE 0.6MG QUALITEST [Suspect]
     Indication: GOUT
     Dosage: 0.6MG ONE BID ORAL
     Route: 048
     Dates: start: 20080806, end: 20080820

REACTIONS (1)
  - ANGIOEDEMA [None]
